FAERS Safety Report 21898526 (Version 1)
Quarter: 2023Q1

REPORT INFORMATION
  Report Type: Spontaneous
  Country: US (occurrence: None)
  Receive Date: 20230123
  Receipt Date: 20230123
  Transmission Date: 20230417
  Serious: Yes (Death, Hospitalization)
  Sender: FDA-Public Use
  Company Number: 2023A017674

PATIENT
  Age: 60 Year
  Sex: Female

DRUGS (10)
  1. QUETIAPINE [Suspect]
     Active Substance: QUETIAPINE
     Route: 048
  2. LISINOPRIL [Suspect]
     Active Substance: LISINOPRIL
     Route: 048
  3. ACETAMINOPHEN\HYDROCODONE BITARTRATE [Suspect]
     Active Substance: ACETAMINOPHEN\HYDROCODONE BITARTRATE
     Route: 048
  4. GABAPENTIN [Suspect]
     Active Substance: GABAPENTIN
     Route: 048
  5. SALICYLATE [Suspect]
     Active Substance: SALICYLIC ACID
     Route: 048
  6. CASANTHRANOL\DOCUSATE SODIUM [Suspect]
     Active Substance: CASANTHRANOL\DOCUSATE SODIUM
     Route: 048
  7. ATORVASTATIN [Suspect]
     Active Substance: ATORVASTATIN
     Route: 048
  8. DEXAMETHASONE [Suspect]
     Active Substance: DEXAMETHASONE
     Route: 048
  9. CLONAZEPAM [Suspect]
     Active Substance: CLONAZEPAM
     Route: 048
  10. ISOSORBIDE [Suspect]
     Active Substance: ISOSORBIDE
     Route: 048

REACTIONS (2)
  - Toxicity to various agents [Fatal]
  - Medication error [Fatal]
